FAERS Safety Report 10237372 (Version 1)
Quarter: 2014Q2

REPORT INFORMATION
  Report Type: Spontaneous
  Country: US (occurrence: US)
  Receive Date: 20140613
  Receipt Date: 20140613
  Transmission Date: 20141212
  Serious: Yes (Hospitalization)
  Sender: FDA-Public Use
  Company Number: US-JNJFOC-20140601602

PATIENT
  Age: 89 Year
  Sex: Male

DRUGS (2)
  1. TYLENOL ANALGESIC UNKNOWN [Suspect]
     Indication: BACK PAIN
     Route: 048
     Dates: end: 20140530
  2. PROCRIT [Concomitant]
     Indication: ANAEMIA
     Route: 058

REACTIONS (4)
  - Liver disorder [Not Recovered/Not Resolved]
  - Pneumonitis [Not Recovered/Not Resolved]
  - Pulmonary embolism [Not Recovered/Not Resolved]
  - Drug ineffective [Unknown]
